FAERS Safety Report 15397561 (Version 2)
Quarter: 2018Q3

REPORT INFORMATION
  Report Type: Spontaneous
  Country: BR (occurrence: BR)
  Receive Date: 20180918
  Receipt Date: 20180918
  Transmission Date: 20181010
  Serious: Yes (Other)
  Sender: FDA-Public Use
  Company Number: BR-ELI_LILLY_AND_COMPANY-BR201808011759

PATIENT
  Age: 68 Year
  Sex: Male

DRUGS (11)
  1. SINVASTATINA [Concomitant]
     Active Substance: SIMVASTATIN
     Indication: BLOOD CHOLESTEROL
     Dosage: UNK
  2. HUMULIN R [Suspect]
     Active Substance: INSULIN HUMAN
     Dosage: 15 IU, AT NOON
     Route: 065
     Dates: start: 1997
  3. HUMULIN R [Suspect]
     Active Substance: INSULIN HUMAN
     Dosage: 15 IU, AT NIGHT
     Route: 065
     Dates: start: 1997
  4. ARTROLIVE [Concomitant]
     Active Substance: CHONDROITIN SULFATE (BOVINE)\GLUCOSAMINE SULFATE
     Indication: RHEUMATOID ARTHRITIS
     Dosage: UNK
  5. HUMULIN R [Suspect]
     Active Substance: INSULIN HUMAN
     Indication: TYPE 1 DIABETES MELLITUS
     Dosage: 10 IU, EACH MORNING
     Route: 065
     Dates: start: 1997
  6. HUMULIN N [Suspect]
     Active Substance: INSULIN HUMAN
     Indication: TYPE 1 DIABETES MELLITUS
     Dosage: 30 IU, EACH MORNING
     Route: 065
     Dates: start: 1997
  7. ARTROLIVE [Concomitant]
     Active Substance: CHONDROITIN SULFATE (BOVINE)\GLUCOSAMINE SULFATE
     Indication: OSTEOARTHRITIS
  8. SELOZOK [Concomitant]
     Active Substance: METOPROLOL SUCCINATE
     Indication: MYOCARDIAL INFARCTION
     Dosage: UNK
     Dates: start: 2006
  9. HUMULIN N [Suspect]
     Active Substance: INSULIN HUMAN
     Dosage: 10 IU, PRN
     Route: 065
  10. METFORMIN [Concomitant]
     Active Substance: METFORMIN HYDROCHLORIDE
     Indication: TYPE 1 DIABETES MELLITUS
     Dosage: UNK
  11. CAPTOPRIL. [Concomitant]
     Active Substance: CAPTOPRIL
     Indication: MYOCARDIAL INFARCTION
     Dosage: 1 DF, QID
     Dates: start: 2006

REACTIONS (6)
  - Myocardial infarction [Unknown]
  - Arthritis [Unknown]
  - Back pain [Unknown]
  - Blood glucose increased [Unknown]
  - Hypertension [Unknown]
  - Arthralgia [Unknown]

NARRATIVE: CASE EVENT DATE: 2006
